FAERS Safety Report 6903713-2 (Version None)
Quarter: 2010Q3

REPORT INFORMATION
  Report Type: 
  Country: None (occurrence: None)
  Receive Date: 20100803
  Receipt Date: 20081115
  Transmission Date: 20110219
  Serious: No
  Sender: FDA-Public Use
  Company Number: US-PFIZER INC-2008097177

PATIENT
  Age: 46 Year
  Sex: Female

DRUGS (3)
  1. LYRICA [Suspect]
     Indication: NEURALGIA
     Dosage: 75MG BID EVERY DAY TDD:150MG
     Dates: start: 20081114
  2. DRUG, UNSPECIFIED [Concomitant]
  3. KLONOPIN [Concomitant]

REACTIONS (1)
  - AMNESIA [None]
